FAERS Safety Report 16593870 (Version 1)
Quarter: 2019Q3

REPORT INFORMATION
  Report Type: Other
  Country: US (occurrence: US)
  Receive Date: 20190718
  Receipt Date: 20190718
  Transmission Date: 20191004
  Serious: No
  Sender: FDA-Public Use
  Company Number: US-SWEDISH ORPHAN BIOVITRUM-2018US1375

PATIENT
  Sex: Female

DRUGS (25)
  1. KINERET [Suspect]
     Active Substance: ANAKINRA
     Route: 058
     Dates: start: 20081008
  2. PREDNISONE. [Concomitant]
     Active Substance: PREDNISONE
     Dosage: AS NEEDED
  3. KEPPRA [Concomitant]
     Active Substance: LEVETIRACETAM
  4. SULFASALAZINE. [Concomitant]
     Active Substance: SULFASALAZINE
  5. MOTRIN [Concomitant]
     Active Substance: IBUPROFEN
     Dosage: AS NEEDED
  6. HYOSCAMINE [Concomitant]
  7. ZYRTEC [Concomitant]
     Active Substance: CETIRIZINE HYDROCHLORIDE
  8. ILARIS [Concomitant]
     Active Substance: CANAKINUMAB
  9. CANAKINUMAB. [Concomitant]
     Active Substance: CANAKINUMAB
  10. TYLENOL [Concomitant]
     Active Substance: ACETAMINOPHEN
     Dosage: AS NEEDED
  11. MIRALAX [Concomitant]
     Active Substance: POLYETHYLENE GLYCOL 3350
  12. PLAQUENIL [Concomitant]
     Active Substance: HYDROXYCHLOROQUINE SULFATE
  13. COLCHICINE. [Concomitant]
     Active Substance: COLCHICINE
  14. RIBOFLAVIN [Concomitant]
     Active Substance: RIBOFLAVIN
  15. SINGULAIR [Concomitant]
     Active Substance: MONTELUKAST SODIUM
  16. VYVANSE [Concomitant]
     Active Substance: LISDEXAMFETAMINE DIMESYLATE
  17. CYPROHEPTADINE. [Concomitant]
     Active Substance: CYPROHEPTADINE
  18. DICLOFENAC [Concomitant]
     Active Substance: DICLOFENAC
  19. PREVACID [Concomitant]
     Active Substance: LANSOPRAZOLE
  20. CARAFATE [Concomitant]
     Active Substance: SUCRALFATE
  21. VITAMIN D2 [Concomitant]
     Active Substance: ERGOCALCIFEROL
  22. FOLIC ACID. [Concomitant]
     Active Substance: FOLIC ACID
  23. RANITIDINE. [Concomitant]
     Active Substance: RANITIDINE
  24. ZOFRAN [Concomitant]
     Active Substance: ONDANSETRON HYDROCHLORIDE
     Dosage: AS NEEDED
  25. FLU SHOT [Concomitant]
     Active Substance: INFLUENZA VIRUS VACCINE
     Dates: start: 20181018, end: 20181018

REACTIONS (2)
  - Injection site pain [Unknown]
  - Injection site erythema [Unknown]
